FAERS Safety Report 7434367-7 (Version None)
Quarter: 2011Q2

REPORT INFORMATION
  Report Type: 
  Country: None (occurrence: None)
  Receive Date: 20110425
  Receipt Date: 20110411
  Transmission Date: 20111010
  Serious: Yes (Other)
  Sender: FDA-Public Use
  Company Number: US-JNJFOC-20110405160

PATIENT
  Age: 64 Year
  Sex: Female
  Weight: 56.7 kg

DRUGS (4)
  1. BENADRYL ALLERGY DYE-FREE [Suspect]
     Route: 048
  2. HALOPERIDOL [Suspect]
     Indication: PSYCHOTIC DISORDER
     Route: 048
  3. HALOPERIDOL [Suspect]
     Route: 048
  4. BENADRYL ALLERGY DYE-FREE [Suspect]
     Indication: MULTIPLE ALLERGIES
     Route: 048

REACTIONS (7)
  - SWOLLEN TONGUE [None]
  - DYSPNOEA [None]
  - CHEST PAIN [None]
  - PHARYNGEAL OEDEMA [None]
  - LIP SWELLING [None]
  - PAIN IN JAW [None]
  - MUSCULOSKELETAL STIFFNESS [None]
